FAERS Safety Report 8432611-0 (Version None)
Quarter: 2012Q2

REPORT INFORMATION
  Report Type: 
  Country: None (occurrence: None)
  Receive Date: 20120613
  Receipt Date: 20120608
  Transmission Date: 20120825
  Serious: Yes (Death)
  Sender: FDA-Public Use
  Company Number: PL-EISAI INC-E7389-00926-CLI-PL

PATIENT
  Sex: Female
  Weight: 53 kg

DRUGS (1)
  1. EPIRUBICIN HYDROCHLORIDE [Suspect]
     Indication: BREAST CANCER
     Route: 041
     Dates: start: 20090917, end: 20100325

REACTIONS (1)
  - SUDDEN DEATH [None]
